FAERS Safety Report 8157742-4 (Version None)
Quarter: 2012Q1

REPORT INFORMATION
  Report Type: 
  Country: None (occurrence: None)
  Receive Date: 20120222
  Receipt Date: 20120220
  Transmission Date: 20120608
  Serious: No
  Sender: FDA-Public Use
  Company Number: US-PFIZER INC-2012014512

PATIENT
  Sex: Female

DRUGS (1)
  1. EFFEXOR XR [Suspect]
     Dosage: UNK

REACTIONS (3)
  - MOOD ALTERED [None]
  - ANXIETY [None]
  - DISTURBANCE IN ATTENTION [None]
